FAERS Safety Report 6509931-X (Version None)
Quarter: 2009Q4

REPORT INFORMATION
  Report Type: 
  Country: None (occurrence: None)
  Receive Date: 20091222
  Receipt Date: 20091211
  Transmission Date: 20100525
  Serious: Yes (Hospitalization, Other)
  Sender: FDA-Public Use
  Company Number: PHHY2009JP53318

PATIENT
  Age: 8 Year
  Sex: Female
  Weight: 16.5 kg

DRUGS (1)
  1. CYCLOSPORINE [Suspect]
     Indication: RENAL TRANSPLANT

REACTIONS (6)
  - ARTERIOVENOUS SHUNT OPERATION [None]
  - DISEASE RECURRENCE [None]
  - KIDNEY TRANSPLANT REJECTION [None]
  - MEDICAL DEVICE COMPLICATION [None]
  - NEPHROPATHY TOXIC [None]
  - SUPERIOR VENA CAVAL OCCLUSION [None]
